FAERS Safety Report 20822601 (Version 2)
Quarter: 2022Q4

REPORT INFORMATION
  Report Type: Spontaneous
  Country: US (occurrence: US)
  Receive Date: 20220512
  Receipt Date: 20221018
  Transmission Date: 20230113
  Serious: No
  Sender: FDA-Public Use
  Company Number: US-BRISTOL-MYERS SQUIBB COMPANY-2022-031336

PATIENT
  Age: 79 Year
  Sex: Female

DRUGS (2)
  1. ORENCIA [Suspect]
     Active Substance: ABATACEPT
     Indication: Rheumatoid arthritis
     Route: 058
  2. ORENCIA [Suspect]
     Active Substance: ABATACEPT
     Dosage: 125 MG, EVERY OTHER WEEK
     Route: 058
     Dates: start: 202201

REACTIONS (5)
  - Joint swelling [Unknown]
  - Arthralgia [Unknown]
  - Grip strength decreased [Unknown]
  - Pain [Unknown]
  - Off label use [Unknown]
